FAERS Safety Report 16185081 (Version 1)
Quarter: 2019Q2

REPORT INFORMATION
  Report Type: Spontaneous
  Country: DK (occurrence: DK)
  Receive Date: 20190411
  Receipt Date: 20190411
  Transmission Date: 20190711
  Serious: Yes (Hospitalization, Other)
  Sender: FDA-Public Use
  Company Number: DK-BRISTOL-MYERS SQUIBB COMPANY-BMS-2019-034484

PATIENT
  Age: 62 Year
  Sex: Male
  Weight: 102 kg

DRUGS (12)
  1. ELIQUIS [Suspect]
     Active Substance: APIXABAN
     Indication: CEREBROVASCULAR ACCIDENT PROPHYLAXIS
     Dosage: 10 MILLIGRAM, 1 DAY
     Route: 048
     Dates: start: 20190118, end: 20190126
  2. FURIX (FUROSEMIDE) [Concomitant]
     Active Substance: FUROSEMIDE
     Indication: DIURETIC THERAPY
     Dosage: 80 MILLIGRAM, 1 DAY
     Route: 048
     Dates: start: 20190113
  3. SAROTEN [Concomitant]
     Active Substance: AMITRIPTYLINE
     Indication: PRODUCT USED FOR UNKNOWN INDICATION
     Dosage: UNK
     Route: 065
  4. ASACOL [Concomitant]
     Active Substance: MESALAMINE
     Indication: PROCTITIS HAEMORRHAGIC
     Dosage: 4800 MILLIGRAM, 1 DAY
     Route: 048
     Dates: start: 20181219
  5. KALIUMKLORID [Concomitant]
     Indication: MINERAL SUPPLEMENTATION
     Dosage: 1500 MILLIGRAM, 1 DAY
     Route: 048
     Dates: start: 20190108
  6. SAROTEN [Concomitant]
     Active Substance: AMITRIPTYLINE
     Indication: NEURALGIA
     Dosage: 100 MILLIGRAM, 1 DAY
     Route: 048
     Dates: start: 20170912
  7. SPIOLTO RESPIMAT [Concomitant]
     Active Substance: OLODATEROL HYDROCHLORIDE\TIOTROPIUM BROMIDE MONOHYDRATE
     Indication: LUNG DISORDER
     Dosage: 2 DOSAGE FORM, 1 DAY
     Route: 055
     Dates: start: 20190105
  8. METOPROLOL. [Concomitant]
     Active Substance: METOPROLOL
     Indication: CARDIAC DISORDER
     Dosage: UNK
     Route: 048
  9. ASACOL [Concomitant]
     Active Substance: MESALAMINE
     Indication: COLITIS ULCERATIVE
     Route: 065
  10. VENTOLINE                          /00139501/ [Concomitant]
     Active Substance: ALBUTEROL
     Indication: LUNG DISORDER
     Dosage: 0.1 MILLIGRAM
     Route: 055
     Dates: start: 20180403
  11. ELIQUIS [Suspect]
     Active Substance: APIXABAN
     Indication: THROMBOSIS PROPHYLAXIS
     Route: 065
  12. PREDNISOLONE. [Concomitant]
     Active Substance: PREDNISOLONE
     Indication: INFLAMMATORY BOWEL DISEASE
     Dosage: 10 MILLIGRAM, 1 DAY
     Route: 054
     Dates: start: 20190103

REACTIONS (5)
  - Oedema [Recovering/Resolving]
  - Rash erythematous [Recovering/Resolving]
  - Pain [Recovering/Resolving]
  - Pyrexia [Unknown]
  - Hypersensitivity vasculitis [Recovered/Resolved with Sequelae]

NARRATIVE: CASE EVENT DATE: 20190119
